FAERS Safety Report 22968289 (Version 2)
Quarter: 2023Q4

REPORT INFORMATION
  Report Type: Report from Study
  Country: US (occurrence: US)
  Receive Date: 20230921
  Receipt Date: 20231031
  Transmission Date: 20240110
  Serious: Yes (Other)
  Sender: FDA-Public Use
  Company Number: US-ABBVIE-5413378

PATIENT
  Age: 54 Year
  Sex: Male
  Weight: 89.357 kg

DRUGS (3)
  1. RINVOQ [Suspect]
     Active Substance: UPADACITINIB
     Indication: Dermatitis atopic
     Dosage: STRENGTH: 15MG?RINVOQ ER?DRUG START DATE: 2023
     Route: 048
  2. RINVOQ [Suspect]
     Active Substance: UPADACITINIB
     Indication: Dermatitis atopic
     Dosage: STRENGTH: 15MG?RINVOQ ER
     Route: 048
     Dates: start: 202302, end: 20230910
  3. KEFLEX [Concomitant]
     Active Substance: CEPHALEXIN
     Indication: Cyst removal

REACTIONS (1)
  - Dermal cyst [Recovered/Resolved]

NARRATIVE: CASE EVENT DATE: 20230724
